FAERS Safety Report 7662544-9 (Version None)
Quarter: 2011Q3

REPORT INFORMATION
  Report Type: 
  Country: None (occurrence: None)
  Receive Date: 20110805
  Receipt Date: 20101124
  Transmission Date: 20111222
  Serious: No
  Sender: FDA-Public Use
  Company Number: US-ABBOTT-10P-163-0687588-00

PATIENT
  Sex: Male
  Weight: 85.352 kg

DRUGS (5)
  1. ASPIRIN [Suspect]
     Indication: PRODUCT USED FOR UNKNOWN INDICATION
  2. ZETIA [Concomitant]
     Indication: PRODUCT USED FOR UNKNOWN INDICATION
  3. TERAZOSIN HCL [Concomitant]
     Indication: PROSTATIC DISORDER
  4. NIASPAN [Suspect]
     Indication: BLOOD CHOLESTEROL
  5. SOTALOL HCL [Concomitant]
     Indication: CARDIAC FLUTTER

REACTIONS (3)
  - PRURITUS [None]
  - EPISTAXIS [None]
  - FLUSHING [None]
